FAERS Safety Report 6767587-5 (Version None)
Quarter: 2010Q2

REPORT INFORMATION
  Report Type: 
  Country: None (occurrence: None)
  Receive Date: 20100614
  Receipt Date: 20100608
  Transmission Date: 20101027
  Serious: Yes (Death)
  Sender: FDA-Public Use
  Company Number: PHHY2010JP37156

PATIENT
  Sex: Female
  Weight: 54 kg

DRUGS (5)
  1. DIOVAN [Suspect]
     Indication: HYPERTENSION
     Dosage: 40 MG, QD
     Route: 048
     Dates: start: 20080116, end: 20091023
  2. NORVASC [Concomitant]
     Indication: HYPERTENSION
     Dosage: 5 MG
     Route: 048
     Dates: start: 20020223
  3. NORVASC [Concomitant]
     Dosage: 5 MG
     Route: 048
     Dates: end: 20091023
  4. TANATRIL [Concomitant]
     Indication: HYPERTENSION
     Dosage: 5 MG
     Route: 048
     Dates: start: 20070725, end: 20080115
  5. LIPITOR [Concomitant]
     Dosage: 5 MG
     Route: 048
     Dates: start: 20070627, end: 20091023

REACTIONS (1)
  - COMPLETED SUICIDE [None]
